FAERS Safety Report 13356728 (Version 3)
Quarter: 2017Q2

REPORT INFORMATION
  Report Type: Spontaneous
  Country: FR (occurrence: FR)
  Receive Date: 20170321
  Receipt Date: 20170508
  Transmission Date: 20170830
  Serious: Yes (Hospitalization)
  Sender: FDA-Public Use
  Company Number: FR-TAKEDA-2017MPI001809

PATIENT
  Age: 66 Year
  Sex: Male

DRUGS (4)
  1. VELCADE [Suspect]
     Active Substance: BORTEZOMIB
     Indication: PLASMA CELL MYELOMA
     Dosage: UNK
     Route: 065
     Dates: start: 20161205, end: 20170202
  2. DEXAMETHASONE. [Suspect]
     Active Substance: DEXAMETHASONE
     Indication: PLASMA CELL MYELOMA
     Dosage: UNK
     Route: 065
     Dates: start: 20161205
  3. THALIDOMIDE [Concomitant]
     Active Substance: THALIDOMIDE
     Dosage: 50 MG, UNK
     Route: 065
     Dates: end: 20170216
  4. THALIDOMIDE [Concomitant]
     Active Substance: THALIDOMIDE
     Indication: PLASMA CELL MYELOMA
     Dosage: UNK
     Route: 065
     Dates: start: 20161205, end: 20170202

REACTIONS (1)
  - Epidural lipomatosis [Recovering/Resolving]

NARRATIVE: CASE EVENT DATE: 20170302
